FAERS Safety Report 16976745 (Version 1)
Quarter: 2019Q4

REPORT INFORMATION
  Report Type: Spontaneous
  Country: FR (occurrence: FR)
  Receive Date: 20191030
  Receipt Date: 20191030
  Transmission Date: 20200122
  Serious: Yes (Congenital Anomaly, Other)
  Sender: FDA-Public Use
  Company Number: FR-PFIZER INC-2019463999

PATIENT
  Age: 5 Month
  Sex: Male

DRUGS (1)
  1. ZOLOFT [Suspect]
     Active Substance: SERTRALINE HYDROCHLORIDE
     Indication: DEPRESSION
     Dosage: 75 MG, 1X/DAY
     Route: 064
     Dates: end: 20190312

REACTIONS (2)
  - Maternal exposure during pregnancy [Unknown]
  - Infantile spasms [Not Recovered/Not Resolved]

NARRATIVE: CASE EVENT DATE: 201909
